FAERS Safety Report 4585992-2 (Version None)
Quarter: 2005Q1

REPORT INFORMATION
  Report Type: 
  Country: None (occurrence: None)
  Receive Date: 20050125
  Receipt Date: 20041014
  Transmission Date: 20050727
  Serious: No
  Sender: FDA-Public Use
  Company Number: USA040566898

PATIENT
  Age: 79 Year
  Sex: Female
  Weight: 61 kg

DRUGS (4)
  1. FORTEO [Suspect]
     Indication: OSTEOPOROSIS
     Dosage: 20 UG/1 DAY
     Dates: start: 20040503
  2. VERAPAMIL [Concomitant]
  3. COZAAR [Concomitant]
  4. FOSAMAX [Concomitant]

REACTIONS (9)
  - ARTHRALGIA [None]
  - DIARRHOEA [None]
  - DIZZINESS [None]
  - MOBILITY DECREASED [None]
  - MYALGIA [None]
  - NAUSEA [None]
  - NECK PAIN [None]
  - PAIN IN EXTREMITY [None]
  - POLYMYALGIA [None]
